FAERS Safety Report 19417282 (Version 2)
Quarter: 2021Q3

REPORT INFORMATION
  Report Type: Report from Study
  Country: None (occurrence: US)
  Receive Date: 20210614
  Receipt Date: 20210705
  Transmission Date: 20211014
  Serious: Yes (Hospitalization, Other)
  Sender: FDA-Public Use
  Company Number: US-ABBVIE-21K-163-3944049-00

PATIENT
  Age: 71 Year
  Sex: Male

DRUGS (3)
  1. IMBRUVICA [Suspect]
     Active Substance: IBRUTINIB
     Indication: CHRONIC LYMPHOCYTIC LEUKAEMIA
     Route: 048
     Dates: start: 202104
  2. IMBRUVICA [Suspect]
     Active Substance: IBRUTINIB
     Indication: CHRONIC LYMPHOCYTIC LEUKAEMIA
     Route: 048
     Dates: start: 20210423
  3. PREDNISONE. [Suspect]
     Active Substance: PREDNISONE
     Indication: PRODUCT USED FOR UNKNOWN INDICATION
     Route: 065

REACTIONS (16)
  - Anaemia [Unknown]
  - Mobility decreased [Unknown]
  - Delirium tremens [Unknown]
  - Cataract [Unknown]
  - Abdominal pain upper [Unknown]
  - Weight increased [Recovering/Resolving]
  - Disease susceptibility [Unknown]
  - Walking aid user [Unknown]
  - Back pain [Unknown]
  - Blood pressure increased [Unknown]
  - Immune system disorder [Unknown]
  - White blood cell count increased [Recovering/Resolving]
  - Productive cough [Unknown]
  - Insomnia [Unknown]
  - Illness [Unknown]
  - Red blood cell count decreased [Recovering/Resolving]

NARRATIVE: CASE EVENT DATE: 2021
